FAERS Safety Report 6496827-5 (Version None)
Quarter: 2009Q4

REPORT INFORMATION
  Report Type: 
  Country: None (occurrence: None)
  Receive Date: 20091125
  Receipt Date: 20090129
  Transmission Date: 20100525
  Serious: Yes (Other)
  Sender: FDA-Public Use
  Company Number: 2009BH001638

PATIENT
  Age: 65 Year
  Sex: Female
  Weight: 78 kg

DRUGS (4)
  1. DIANEAL [Suspect]
     Indication: PERITONEAL DIALYSIS
     Dosage: IP
     Route: 033
     Dates: start: 20071001, end: 20090120
  2. LEXAPRO [Concomitant]
  3. PLAVIX [Concomitant]
  4. EPOGEN [Concomitant]

REACTIONS (2)
  - PERITONEAL DIALYSIS COMPLICATION [None]
  - PERITONITIS BACTERIAL [None]
